FAERS Safety Report 20640130 (Version 2)
Quarter: 2022Q2

REPORT INFORMATION
  Report Type: Report from Study
  Country: CO (occurrence: CO)
  Receive Date: 20220326
  Receipt Date: 20220610
  Transmission Date: 20220721
  Serious: No
  Sender: FDA-Public Use
  Company Number: CO-NOVARTISPH-NVSC2022CO069141

PATIENT
  Sex: Female
  Weight: 52 kg

DRUGS (1)
  1. ILARIS [Suspect]
     Active Substance: CANAKINUMAB
     Indication: Mevalonate kinase deficiency
     Dosage: 150 MG, QMO
     Route: 058
     Dates: start: 20220311

REACTIONS (1)
  - Coagulation time shortened [Unknown]
